FAERS Safety Report 4371708-1 (Version None)
Quarter: 2004Q2

REPORT INFORMATION
  Report Type: 
  Country: None (occurrence: None)
  Receive Date: 20040602
  Receipt Date: 20040518
  Transmission Date: 20050107
  Serious: Yes (Death, Congenital Anomaly)
  Sender: FDA-Public Use
  Company Number: FR-JNJFOC-20040506547

PATIENT

DRUGS (3)
  1. TOPIRAMATE [Suspect]
     Dosage: 200 MG IN 1 DAY TRANSPLACENTAL
     Route: 064
     Dates: start: 20030619, end: 20040101
  2. NEURONTIN [Concomitant]
  3. DEPAKENE [Concomitant]

REACTIONS (3)
  - ABORTION INDUCED [None]
  - DRUG EXPOSURE DURING PREGNANCY [None]
  - MULTIPLE CONGENITAL ABNORMALITIES [None]
